FAERS Safety Report 20900215 (Version 1)
Quarter: 2022Q2

REPORT INFORMATION
  Report Type: Spontaneous
  Country: FR (occurrence: FR)
  Receive Date: 20220601
  Receipt Date: 20220601
  Transmission Date: 20220721
  Serious: Yes (Other)
  Sender: FDA-Public Use
  Company Number: None

PATIENT
  Age: 65 Year
  Sex: Male
  Weight: 103 kg

DRUGS (17)
  1. ATORVASTATIN [Suspect]
     Active Substance: ATORVASTATIN
     Indication: Insomnia
     Route: 048
     Dates: end: 20220316
  2. VALACYCLOVIR HYDROCHLORIDE [Suspect]
     Active Substance: VALACYCLOVIR HYDROCHLORIDE
     Indication: Prophylaxis
     Dosage: STRENGTH 500 MG
     Route: 048
     Dates: start: 20220317, end: 20220318
  3. LOVENOX [Suspect]
     Active Substance: ENOXAPARIN SODIUM
     Indication: Prophylaxis
     Dosage: 4000 ANTI-XA IU/0.4 ML
     Route: 058
     Dates: start: 20220223, end: 20220322
  4. ZOPICLONE [Suspect]
     Active Substance: ZOPICLONE
     Indication: Insomnia
     Dosage: STRENGTH  3.75MG
     Route: 048
     Dates: end: 20220320
  5. FUROSEMIDE [Suspect]
     Active Substance: FUROSEMIDE
     Indication: Product used for unknown indication
     Dosage: STRENGTH 20 MG/2 ML
     Route: 042
     Dates: start: 20220317, end: 20220320
  6. BUMETANIDE [Suspect]
     Active Substance: BUMETANIDE
     Indication: Prophylaxis
     Dosage: STRENGTH 1 MG
     Route: 048
     Dates: start: 20220302, end: 20220317
  7. ZINC [Concomitant]
     Active Substance: ZINC
  8. AMITRIPTYLINE HYDROCHLORIDE [Concomitant]
     Active Substance: AMITRIPTYLINE HYDROCHLORIDE
  9. ALPRAZOLAM [Concomitant]
     Active Substance: ALPRAZOLAM
  10. GABAPENTIN [Concomitant]
     Active Substance: GABAPENTIN
  11. CEFOTAXIME SODIUM [Concomitant]
     Active Substance: CEFOTAXIME SODIUM
  12. METFORMIN [Concomitant]
     Active Substance: METFORMIN HYDROCHLORIDE
  13. MINERAL OIL [Concomitant]
     Active Substance: MINERAL OIL
  14. ARGININE VEYRON [Concomitant]
  15. PANTOPRAZOLE [Concomitant]
     Active Substance: PANTOPRAZOLE
  16. ACETAMINOPHEN [Concomitant]
     Active Substance: ACETAMINOPHEN
  17. OXYCODONE [Concomitant]
     Active Substance: OXYCODONE

REACTIONS (3)
  - Cholestasis [Recovering/Resolving]
  - Hepatic cytolysis [Recovering/Resolving]
  - Off label use [Unknown]

NARRATIVE: CASE EVENT DATE: 20220318
